FAERS Safety Report 17340942 (Version 1)
Quarter: 2020Q1

REPORT INFORMATION
  Report Type: Spontaneous
  Country: US (occurrence: US)
  Receive Date: 20200129
  Receipt Date: 20200129
  Transmission Date: 20200409
  Serious: No
  Sender: FDA-Public Use
  Company Number: US-GALDERMA-US19042807

PATIENT
  Age: 23 Year
  Sex: Female

DRUGS (2)
  1. PROACTIV MD ADAPALENE ACNE TREATMENT [Suspect]
     Active Substance: ADAPALENE
     Indication: ACNE
     Dosage: 0.1%
     Route: 061
     Dates: start: 20190530, end: 20190617
  2. PROACTIV MD DEEP CLEANSING FACE WASH [Concomitant]
     Active Substance: COSMETICS
     Indication: ACNE
     Route: 061
     Dates: start: 20190530, end: 20190617

REACTIONS (6)
  - Swelling face [Recovering/Resolving]
  - Skin burning sensation [Not Recovered/Not Resolved]
  - Rash macular [Not Recovered/Not Resolved]
  - Dry skin [Recovering/Resolving]
  - Erythema [Recovering/Resolving]
  - Acne [Not Recovered/Not Resolved]

NARRATIVE: CASE EVENT DATE: 20190613
